FAERS Safety Report 4872553-0 (Version None)
Quarter: 2006Q1

REPORT INFORMATION
  Report Type: 
  Country: None (occurrence: None)
  Receive Date: 20060105
  Receipt Date: 20050810
  Transmission Date: 20060701
  Serious: Yes (Hospitalization)
  Sender: FDA-Public Use
  Company Number: US-BOEHRINGER INGELHEIM PHARMACEUTICALS, INC.-2005-BP-13694BP

PATIENT
  Age: 55 Year
  Sex: Male

DRUGS (9)
  1. CATAPRES-TTS-1 [Suspect]
     Indication: HYPERTENSION
     Route: 061
  2. FOSAMAX [Concomitant]
     Route: 048
  3. CYCLOSPORINE [Concomitant]
     Route: 048
  4. HEPARIN [Concomitant]
     Route: 048
  5. REGULAR INSULIN [Concomitant]
     Route: 058
  6. ISRADIPINE [Concomitant]
  7. PROTONIX [Concomitant]
  8. PREDNISONE [Concomitant]
  9. VALPROATE SODIUM [Concomitant]

REACTIONS (2)
  - CEREBROVASCULAR ACCIDENT [None]
  - URINARY RETENTION [None]
